FAERS Safety Report 11977057 (Version 1)
Quarter: 2016Q1

REPORT INFORMATION
  Report Type: Spontaneous
  Country: US (occurrence: None)
  Receive Date: 20160128
  Receipt Date: 20160128
  Transmission Date: 20160526
  Serious: Yes (Other)
  Sender: FDA-Public Use
  Company Number: None

PATIENT
  Age: 97 Year
  Sex: Female
  Weight: 68.49 kg

DRUGS (8)
  1. OMEPRAZOLE. [Concomitant]
     Active Substance: OMEPRAZOLE
  2. VITAMIN D [Concomitant]
     Active Substance: CHOLECALCIFEROL
  3. TAMIFLU [Suspect]
     Active Substance: OSELTAMIVIR PHOSPHATE
     Indication: INFLUENZA
     Dosage: EVERY OTHER DAY
     Route: 048
     Dates: start: 20141224, end: 20150107
  4. LASIX [Concomitant]
     Active Substance: FUROSEMIDE
  5. ACETAMINOPHEN. [Concomitant]
     Active Substance: ACETAMINOPHEN
  6. VITAMIN C [Concomitant]
     Active Substance: ASCORBIC ACID
  7. COUMADIN [Concomitant]
     Active Substance: WARFARIN SODIUM
  8. DETROL [Concomitant]
     Active Substance: TOLTERODINE TARTRATE

REACTIONS (6)
  - Feeling abnormal [None]
  - Nausea [None]
  - Hypophagia [None]
  - Dehydration [None]
  - Blood pressure increased [None]
  - International normalised ratio increased [None]

NARRATIVE: CASE EVENT DATE: 20150110
